FAERS Safety Report 9580099 (Version 1)
Quarter: 2013Q3

REPORT INFORMATION
  Report Type: Spontaneous
  Country: US (occurrence: None)
  Receive Date: 20130930
  Receipt Date: 20130930
  Transmission Date: 20140515
  Serious: Yes (Hospitalization, Disabling)
  Sender: FDA-Public Use
  Company Number: None

PATIENT
  Age: 57 Year
  Sex: Female
  Weight: 49.9 kg

DRUGS (1)
  1. LEVAQUIN [Suspect]
     Indication: ATYPICAL PNEUMONIA
     Dosage: 1, ONCE DAILY, TAKEN BY MOUTH, EIGHT DAYS
     Route: 048

REACTIONS (5)
  - Toxicity to various agents [None]
  - Tendon rupture [None]
  - Wheelchair user [None]
  - Ligament rupture [None]
  - Tendon rupture [None]
